FAERS Safety Report 6813137-4 (Version None)
Quarter: 2010Q3

REPORT INFORMATION
  Report Type: 
  Country: None (occurrence: None)
  Receive Date: 20100701
  Receipt Date: 20100624
  Transmission Date: 20110219
  Serious: Yes (Life-Threatening)
  Sender: FDA-Public Use
  Company Number: US-PFIZER INC-2010079467

PATIENT
  Sex: Male

DRUGS (1)
  1. CORTEF [Suspect]
     Dosage: UNK

REACTIONS (1)
  - ADRENAL INSUFFICIENCY [None]
